FAERS Safety Report 23681684 (Version 1)
Quarter: 2024Q1

REPORT INFORMATION
  Report Type: Spontaneous
  Country: RU (occurrence: None)
  Receive Date: 20240328
  Receipt Date: 20240328
  Transmission Date: 20240410
  Serious: Yes (Other)
  Sender: FDA-Public Use
  Company Number: RU-ROCHE-3531024

PATIENT
  Sex: Female
  Weight: 77 kg

DRUGS (4)
  1. TRASTUZUMAB [Suspect]
     Active Substance: TRASTUZUMAB
     Indication: Breast cancer
     Dosage: SUBSEQUENT CYCLES RECEIVED ON 23/AUG/2023, 14/SEP/2023
     Route: 065
     Dates: start: 20230807
  2. PERTUZUMAB [Suspect]
     Active Substance: PERTUZUMAB
     Indication: Breast cancer
     Dosage: SUBSEQUENT CYCLES RECEIVED ON 23/AUG/2023, 14/SEP/2023
     Route: 065
     Dates: start: 20230807
  3. DOCETAXEL [Suspect]
     Active Substance: DOCETAXEL\DOCETAXEL ANHYDROUS
     Indication: Breast cancer
     Dosage: SUBSEQUENT CYCLES RECEIVED ON 23/AUG/2023, 14/SEP/2023
     Route: 065
     Dates: start: 20230807
  4. CARBOPLATIN [Suspect]
     Active Substance: CARBOPLATIN
     Indication: Breast cancer
     Dosage: SUBSEQUENT CYCLES RECEIVED ON 23/AUG/2023, 14/SEP/2023
     Route: 065
     Dates: start: 20230807

REACTIONS (3)
  - Thrombocytopenia [Unknown]
  - Asthenia [Unknown]
  - Malaise [Unknown]
